FAERS Safety Report 4283051-X (Version None)
Quarter: 2004Q1

REPORT INFORMATION
  Report Type: 
  Country: None (occurrence: None)
  Receive Date: 20040129
  Receipt Date: 20040122
  Transmission Date: 20041129
  Serious: Yes (Death, Hospitalization)
  Sender: FDA-Public Use
  Company Number: 200410232GDS

PATIENT
  Age: 10 Year
  Sex: Female

DRUGS (1)
  1. ASPIRIN [Suspect]
     Dosage: 650 MG, TOTAL DAILY, ORAL
     Route: 048

REACTIONS (9)
  - ACTIVATED PARTIAL THROMBOPLASTIN TIME PROLONGED [None]
  - BRAIN DEATH [None]
  - CARDIOVASCULAR DISORDER [None]
  - HEPATIC STEATOSIS [None]
  - INTRACRANIAL PRESSURE INCREASED [None]
  - PROTHROMBIN TIME PROLONGED [None]
  - RESPIRATORY TRACT INFECTION VIRAL [None]
  - REYE'S SYNDROME [None]
  - VENTRICULAR TACHYCARDIA [None]
